FAERS Safety Report 9298438 (Version 5)
Quarter: 2014Q2

REPORT INFORMATION
  Report Type: Spontaneous
  Country: US (occurrence: US)
  Receive Date: 20130520
  Receipt Date: 20140515
  Transmission Date: 20141212
  Serious: Yes (Hospitalization)
  Sender: FDA-Public Use
  Company Number: US-009507513-1305USA009446

PATIENT
  Sex: Male

DRUGS (3)
  1. PROPECIA [Suspect]
     Indication: ANDROGENETIC ALOPECIA
     Dosage: 1 MG, UNK
     Route: 048
     Dates: start: 20090409
  2. MINOXIDIL [Concomitant]
  3. FINASTERIDE [Suspect]
     Dosage: 5 MG,  1/4 TABLET
     Route: 048
     Dates: start: 20110520

REACTIONS (9)
  - Adverse event [Unknown]
  - Hair transplant [Unknown]
  - Hair transplant [Unknown]
  - Hair transplant [Unknown]
  - Erectile dysfunction [Not Recovered/Not Resolved]
  - Sexual dysfunction [Not Recovered/Not Resolved]
  - Drug administration error [Unknown]
  - Wrong technique in drug usage process [Unknown]
  - Hyperlipidaemia [Unknown]
